FAERS Safety Report 17197879 (Version 2)
Quarter: 2020Q1

REPORT INFORMATION
  Report Type: Spontaneous
  Country: US (occurrence: US)
  Receive Date: 20191224
  Receipt Date: 20200107
  Transmission Date: 20200409
  Serious: Yes (Death, Other)
  Sender: FDA-Public Use
  Company Number: US-AMGEN-USASP2019211311

PATIENT
  Age: 62 Year
  Sex: Male

DRUGS (1)
  1. CINACALCET HCL [Suspect]
     Active Substance: CINACALCET HYDROCHLORIDE
     Indication: HYPERCALCAEMIA
     Dosage: UNK
     Route: 065

REACTIONS (4)
  - Hypercalcaemia [Unknown]
  - Death [Fatal]
  - Mental status changes [Unknown]
  - Off label use [Unknown]
